FAERS Safety Report 7284937-4 (Version None)
Quarter: 2011Q1

REPORT INFORMATION
  Report Type: 
  Country: None (occurrence: None)
  Receive Date: 20110210
  Receipt Date: 20100909
  Transmission Date: 20110831
  Serious: Yes (Hospitalization)
  Sender: FDA-Public Use
  Company Number: US-BAYER-201028212NA

PATIENT
  Sex: Female
  Weight: 63.492 kg

DRUGS (10)
  1. OCELLA [Suspect]
     Indication: MENSTRUAL CYCLE MANAGEMENT
     Dosage: UNK UNK, UNK
     Route: 048
     Dates: start: 20080722, end: 20101117
  2. OCELLA [Suspect]
  3. YAZ [Suspect]
     Indication: ORAL CONTRACEPTION
  4. YASMIN [Suspect]
     Indication: MENSTRUAL CYCLE MANAGEMENT
     Dosage: UNK UNK, UNK
     Route: 048
     Dates: start: 20040106, end: 20080623
  5. CELEXA [Concomitant]
     Indication: ANXIETY
     Dosage: 20 MG, QD
     Dates: start: 20000101
  6. YAZ [Suspect]
     Indication: MENSTRUAL CYCLE MANAGEMENT
     Route: 048
     Dates: start: 20050101, end: 20051201
  7. IBUPROFEN [Concomitant]
     Dosage: UNK
     Dates: start: 20050207
  8. NASONEX [Concomitant]
     Indication: MULTIPLE ALLERGIES
     Dosage: UNK
     Dates: start: 20030101
  9. YASMIN [Suspect]
     Indication: ORAL CONTRACEPTION
  10. RHINOCORT [Concomitant]
     Dosage: UNK
     Route: 045
     Dates: start: 20020101

REACTIONS (11)
  - MEDICAL DIET [None]
  - BACK PAIN [None]
  - PROCEDURAL PAIN [None]
  - VOMITING [None]
  - ANXIETY [None]
  - NAUSEA [None]
  - CHOLECYSTITIS ACUTE [None]
  - MUSCULOSKELETAL CHEST PAIN [None]
  - PAIN [None]
  - CHOLELITHIASIS [None]
  - GASTROINTESTINAL DISORDER [None]
